FAERS Safety Report 14336237 (Version 1)
Quarter: 2017Q4

REPORT INFORMATION
  Report Type: Spontaneous
  Country: TR (occurrence: TR)
  Receive Date: 20171229
  Receipt Date: 20171229
  Transmission Date: 20180321
  Serious: Yes (Death)
  Sender: FDA-Public Use
  Company Number: TR-ALLERGAN-1773894US

PATIENT
  Age: 57 Year
  Sex: Female

DRUGS (2)
  1. ESCITALOPRAM OXALATE - BP [Suspect]
     Active Substance: ESCITALOPRAM OXALATE
     Indication: DEPRESSION
     Route: 048
     Dates: start: 20171212, end: 20171216
  2. REMERON [Suspect]
     Active Substance: MIRTAZAPINE
     Indication: DEPRESSION
     Route: 048
     Dates: start: 20171212, end: 20171216

REACTIONS (1)
  - Completed suicide [Fatal]

NARRATIVE: CASE EVENT DATE: 20171216
